FAERS Safety Report 5125787-4 (Version None)
Quarter: 2006Q4

REPORT INFORMATION
  Report Type: 
  Country: None (occurrence: None)
  Receive Date: 20061010
  Receipt Date: 20061010
  Transmission Date: 20070319
  Serious: Yes (Hospitalization)
  Sender: FDA-Public Use
  Company Number: None

PATIENT
  Sex: Female
  Weight: 54.6 kg

DRUGS (10)
  1. CETUXIMAB, 400 MG/ M2, BRISTOL MYERS SQUIBB [Suspect]
     Indication: CERVIX CARCINOMA
     Dosage: 628 MG CYCLE 1, DAY 1 IV
     Route: 042
     Dates: start: 20060901
  2. CETUXIMAB, 250 MG/M2, BRISTOL MYERS SQUIBB [Suspect]
     Indication: CERVIX CARCINOMA
     Dosage: 392 MG ONCE EACH WEEK IV
     Route: 042
     Dates: start: 20060907
  3. OXYCONTIN [Concomitant]
  4. OXYCODONE HCL [Concomitant]
  5. GABAPENTIN [Concomitant]
  6. PROMETHAZINE HCL [Concomitant]
  7. TEMAZEPAM [Concomitant]
  8. METOPROLOL TARTRATE [Concomitant]
  9. GLYCERIN SUPPOSITORY [Concomitant]
  10. SENNA [Concomitant]

REACTIONS (6)
  - CATHETER SITE CELLULITIS [None]
  - CATHETER SITE DISCHARGE [None]
  - CELLULITIS [None]
  - CONSTIPATION [None]
  - EXCORIATION [None]
  - INADEQUATE ANALGESIA [None]
